FAERS Safety Report 19412921 (Version 6)
Quarter: 2023Q1

REPORT INFORMATION
  Report Type: Spontaneous
  Country: US (occurrence: US)
  Receive Date: 20210614
  Receipt Date: 20230131
  Transmission Date: 20230417
  Serious: Yes (Hospitalization, Other)
  Sender: FDA-Public Use
  Company Number: US-PFIZER INC-2021493267

PATIENT
  Age: 35 Year
  Sex: Female

DRUGS (3)
  1. XELJANZ [Suspect]
     Active Substance: TOFACITINIB CITRATE
     Indication: Colitis ulcerative
     Dosage: 5 MG, 2X/DAY
     Route: 048
     Dates: start: 201812
  2. XELJANZ [Suspect]
     Active Substance: TOFACITINIB CITRATE
     Dosage: 5 MG, 2X/DAY
     Route: 048
     Dates: start: 202012
  3. XELJANZ [Suspect]
     Active Substance: TOFACITINIB CITRATE
     Dosage: 5 MG
     Route: 048
     Dates: start: 20210720

REACTIONS (10)
  - COVID-19 [Unknown]
  - Haematochezia [Unknown]
  - Product dose omission issue [Unknown]
  - Headache [Unknown]
  - Bowel movement irregularity [Unknown]
  - Acne [Unknown]
  - Condition aggravated [Unknown]
  - Pollakiuria [Unknown]
  - Micturition urgency [Unknown]
  - Diarrhoea [Unknown]
